FAERS Safety Report 4643339-7 (Version None)
Quarter: 2005Q2

REPORT INFORMATION
  Report Type: 
  Country: None (occurrence: None)
  Receive Date: 20050422
  Receipt Date: 20050412
  Transmission Date: 20051028
  Serious: Yes (Death, Hospitalization, Other)
  Sender: FDA-Public Use
  Company Number: 2005-02-0216

PATIENT
  Age: 71 Year
  Sex: Female
  Weight: 36.2878 kg

DRUGS (1)
  1. ALBUTEROL SULFATE [Suspect]
     Indication: RESPIRATORY DISORDER
     Dosage: INHALATION
     Route: 055
     Dates: start: 20011106, end: 20011106

REACTIONS (9)
  - BLINDNESS [None]
  - CERUMEN IMPACTION [None]
  - COMA [None]
  - DEAFNESS [None]
  - DRUG HYPERSENSITIVITY [None]
  - FOAMING AT MOUTH [None]
  - HYPERSENSITIVITY [None]
  - RESPIRATORY ARREST [None]
  - SCREAMING [None]
